FAERS Safety Report 13375451 (Version 3)
Quarter: 2017Q2

REPORT INFORMATION
  Report Type: Spontaneous
  Country: MT (occurrence: MT)
  Receive Date: 20170327
  Receipt Date: 20170509
  Transmission Date: 20170830
  Serious: Yes (Death, Other)
  Sender: FDA-Public Use
  Company Number: MT-AMGEN-MLTSP2017046090

PATIENT
  Age: 62 Year
  Sex: Female

DRUGS (6)
  1. METHOTREXATE. [Concomitant]
     Active Substance: METHOTREXATE
     Dosage: 7.5 MG, WEEKLY
  2. FOLIC ACID. [Concomitant]
     Active Substance: FOLIC ACID
     Dosage: 10 MG, WEEKLY
  3. PAROXETINE. [Concomitant]
     Active Substance: PAROXETINE
     Dosage: 20 MG, QD
  4. CALCIUM LACTATE [Concomitant]
     Active Substance: CALCIUM LACTATE
     Dosage: 300 MG, 1X/DAY
  5. ONE ALPHA [Concomitant]
     Active Substance: ALFACALCIDOL
     Dosage: 0.25 UG, 1X/DAY
  6. ENBREL [Suspect]
     Active Substance: ETANERCEPT
     Indication: RHEUMATOID ARTHRITIS
     Dosage: 50 MG, WEEKLY
     Route: 058
     Dates: start: 201111, end: 2016

REACTIONS (7)
  - Acute kidney injury [Fatal]
  - Right ventricular dysfunction [Unknown]
  - Endocarditis [Unknown]
  - Atrial fibrillation [Fatal]
  - Cardiovascular disorder [Unknown]
  - Right ventricular dilatation [Unknown]
  - Right atrial dilatation [Unknown]

NARRATIVE: CASE EVENT DATE: 201703
